FAERS Safety Report 9620387 (Version 1)
Quarter: 2013Q4

REPORT INFORMATION
  Report Type: Spontaneous
  Country: US (occurrence: US)
  Receive Date: 20131015
  Receipt Date: 20131015
  Transmission Date: 20140711
  Serious: No
  Sender: FDA-Public Use
  Company Number: -SAAVPROD-BMS15504004

PATIENT
  Age: 62 Year
  Sex: Female

DRUGS (2)
  1. AVALIDE TABS 300 MG/25 MG [Suspect]
     Indication: HYPERTENSION
     Dosage: PILLS;STARTED 2-3 YEARS AGO?1 DF=300/25MG TABS
  2. ATENOLOL [Suspect]

REACTIONS (3)
  - Hypertension [Unknown]
  - Headache [Unknown]
  - Medication error [Unknown]
